FAERS Safety Report 23276417 (Version 1)
Quarter: 2023Q4

REPORT INFORMATION
  Report Type: Spontaneous
  Country: CN (occurrence: CN)
  Receive Date: 20231208
  Receipt Date: 20231208
  Transmission Date: 20240110
  Serious: Yes (Other)
  Sender: FDA-Public Use
  Company Number: CN-PFIZER INC-PV202300196956

PATIENT
  Age: 78 Year
  Sex: Male
  Weight: 45 kg

DRUGS (2)
  1. VORICONAZOLE [Suspect]
     Active Substance: VORICONAZOLE
     Indication: Anti-infective therapy
     Dosage: 0.2 G, 2X/DAY
     Route: 041
     Dates: start: 20231124
  2. SODIUM CHLORIDE [Concomitant]
     Active Substance: SODIUM CHLORIDE
     Indication: Vehicle solution use
     Dosage: 100 ML, 2X/DAY
     Route: 041
     Dates: start: 20231124

REACTIONS (3)
  - Renal impairment [Unknown]
  - Renal failure [Unknown]
  - Cardiac failure [Unknown]

NARRATIVE: CASE EVENT DATE: 20231128
